FAERS Safety Report 8991069 (Version 1)
Quarter: 2012Q4

REPORT INFORMATION
  Report Type: 
  Country: GB (occurrence: GB)
  Receive Date: 20121231
  Receipt Date: 20121231
  Transmission Date: 20130627
  Serious: Yes (Hospitalization, Other)
  Sender: FDA-Public Use
  Company Number: GB-BRISTOL-MYERS SQUIBB COMPANY-17249053

PATIENT
  Age: 62 Year
  Sex: Male

DRUGS (4)
  1. DASATINIB [Suspect]
     Indication: LEUKAEMIA
     Route: 048
  2. NITROFURANTOIN [Concomitant]
  3. ALLOPURINOL [Concomitant]
  4. HYDROXYCARBAMIDE [Concomitant]

REACTIONS (3)
  - Urinary retention [Recovered/Resolved]
  - Constipation [Recovering/Resolving]
  - Urinary tract infection [Unknown]
